FAERS Safety Report 5734655-6 (Version None)
Quarter: 2008Q2

REPORT INFORMATION
  Report Type: 
  Country: None (occurrence: None)
  Receive Date: 20080512
  Receipt Date: 20080508
  Transmission Date: 20081010
  Serious: Yes (Life-Threatening, Disabling, Other)
  Sender: FDA-Public Use
  Company Number: PHHY2008JP01246

PATIENT
  Age: 76 Year
  Sex: Male
  Weight: 50 kg

DRUGS (7)
  1. LOXONIN [Suspect]
     Indication: PAIN
     Dosage: 60 MG, TID
     Route: 048
     Dates: start: 20080107
  2. CLINDAMYCIN HCL [Concomitant]
     Indication: PLEURISY
     Dosage: 1200 MG/DAY
     Route: 042
     Dates: start: 20080107, end: 20080115
  3. SELBEX [Concomitant]
     Indication: ABDOMINAL PAIN UPPER
     Dosage: 150 MG/DAY
     Route: 048
     Dates: start: 20080107
  4. MOSAPRIDE [Concomitant]
     Indication: ABDOMINAL PAIN UPPER
     Dosage: 15 MG/DAY
     Route: 048
     Dates: start: 20080107
  5. AMOBAN [Concomitant]
     Indication: INSOMNIA
     Dosage: 7.5 MG/DAY
     Route: 048
     Dates: start: 20080110
  6. ZOMETA [Suspect]
     Indication: METASTASES TO BONE
     Dosage: 4 MG DILUTED TO 100 ML NORMAL SALINE
     Route: 042
     Dates: start: 20080111, end: 20080111
  7. IRESSA [Concomitant]
     Route: 048

REACTIONS (13)
  - ASPARTATE AMINOTRANSFERASE INCREASED [None]
  - BLOOD ALKALINE PHOSPHATASE INCREASED [None]
  - BLOOD CREATININE INCREASED [None]
  - BLOOD LACTATE DEHYDROGENASE INCREASED [None]
  - BLOOD POTASSIUM INCREASED [None]
  - BLOOD UREA INCREASED [None]
  - COUGH [None]
  - DIALYSIS [None]
  - GENERAL PHYSICAL HEALTH DETERIORATION [None]
  - HAEMOGLOBIN DECREASED [None]
  - RED BLOOD CELL COUNT DECREASED [None]
  - RENAL FAILURE ACUTE [None]
  - WHITE BLOOD CELL COUNT DECREASED [None]
